FAERS Safety Report 4717671-2 (Version None)
Quarter: 2005Q3

REPORT INFORMATION
  Report Type: 
  Country: None (occurrence: None)
  Receive Date: 20050713
  Receipt Date: 20040917
  Transmission Date: 20060218
  Serious: Yes (Hospitalization)
  Sender: FDA-Public Use
  Company Number: 2004224881US

PATIENT
  Age: 65 Year
  Sex: Female

DRUGS (3)
  1. DEPO-MEDROL [Suspect]
     Indication: PAIN MANAGEMENT
     Dosage: SINGLE, EPIDURAL
     Route: 008
     Dates: start: 20040628, end: 20040628
  2. EFFEXOR [Concomitant]
  3. ZOLOFT [Concomitant]

REACTIONS (1)
  - PSYCHOTIC DISORDER [None]
